FAERS Safety Report 9264868 (Version 2)
Quarter: 2014Q3

REPORT INFORMATION
  Report Type: Report from Study
  Country: AU (occurrence: AU)
  Receive Date: 20130501
  Receipt Date: 20140702
  Transmission Date: 20150326
  Serious: Yes (Other)
  Sender: FDA-Public Use
  Company Number: PHHY2013AU041501

PATIENT
  Age: 85 Year
  Sex: Male

DRUGS (3)
  1. ACLASTA [Suspect]
     Active Substance: ZOLEDRONIC ACID
     Dosage: 5 MG, UNK
     Route: 042
     Dates: start: 20120227
  2. ACLASTA [Suspect]
     Active Substance: ZOLEDRONIC ACID
     Dosage: 5 MG, UNK
     Route: 042
     Dates: start: 20100910
  3. ACLASTA [Suspect]
     Active Substance: ZOLEDRONIC ACID
     Dosage: 5 MG, UNK
     Route: 042
     Dates: start: 20130306

REACTIONS (8)
  - Glomerular filtration rate decreased [Not Recovered/Not Resolved]
  - Blood albumin decreased [Recovered/Resolved]
  - Blood creatinine increased [Not Recovered/Not Resolved]
  - Plasma cell myeloma [Unknown]
  - Leukaemia [Unknown]
  - Protein total decreased [Recovered/Resolved]
  - Blood urea increased [Not Recovered/Not Resolved]
  - Gamma-glutamyltransferase decreased [Recovered/Resolved]

NARRATIVE: CASE EVENT DATE: 20140425
